FAERS Safety Report 4682128-4 (Version None)
Quarter: 2005Q2

REPORT INFORMATION
  Report Type: 
  Country: None (occurrence: None)
  Receive Date: 20050602
  Receipt Date: 20040804
  Transmission Date: 20051028
  Serious: Yes (Life-Threatening, Hospitalization)
  Sender: FDA-Public Use
  Company Number: 0408-240

PATIENT
  Age: 3 Year
  Sex: Male
  Weight: 14 kg

DRUGS (1)
  1. DUONEB [Suspect]
     Indication: ASTHMA
     Dosage: 1 UNIT

REACTIONS (1)
  - RESPIRATORY DISTRESS [None]
